FAERS Safety Report 6642592-8 (Version None)
Quarter: 2010Q1

REPORT INFORMATION
  Report Type: 
  Country: None (occurrence: None)
  Receive Date: 20100319
  Receipt Date: 20100305
  Transmission Date: 20100710
  Serious: Yes (Other)
  Sender: FDA-Public Use
  Company Number: US-ELI_LILLY_AND_COMPANY-US201001001959

PATIENT
  Age: 52 Year
  Sex: Male
  Weight: 84.354 kg

DRUGS (4)
  1. CYMBALTA [Suspect]
     Indication: MAJOR DEPRESSION
     Dosage: 30 MG, DAILY (1/D)
     Dates: start: 20061229, end: 20090622
  2. CYMBALTA [Suspect]
     Dosage: 60 MG, DAILY (1/D)
     Dates: start: 20090622
  3. LIPITOR [Concomitant]
     Dosage: 40 MG, DAILY (1/D)
  4. ZETIA [Concomitant]
     Dosage: 10 MG, DAILY (1/D)

REACTIONS (4)
  - ATRIAL SEPTAL DEFECT [None]
  - BLOOD CHOLESTEROL INCREASED [None]
  - LACUNAR INFARCTION [None]
  - PROSTATE CANCER [None]
